FAERS Safety Report 12723258 (Version 1)
Quarter: 2016Q3

REPORT INFORMATION
  Report Type: Spontaneous
  Country: GB (occurrence: GB)
  Receive Date: 20160908
  Receipt Date: 20160908
  Transmission Date: 20161109
  Serious: Yes (Other)
  Sender: FDA-Public Use
  Company Number: GB-BAUSCH-BL-2016-021461

PATIENT
  Sex: Female

DRUGS (1)
  1. METRONIDAZOLE. [Suspect]
     Active Substance: METRONIDAZOLE
     Indication: COMPLICATION OF DELIVERY
     Route: 048

REACTIONS (5)
  - Bradycardia [Recovered/Resolved]
  - Malaise [Recovered/Resolved]
  - Drug prescribing error [Unknown]
  - Feeling abnormal [Unknown]
  - Overdose [Unknown]
